FAERS Safety Report 9366953 (Version 3)
Quarter: 2013Q3

REPORT INFORMATION
  Report Type: Spontaneous
  Country: BR (occurrence: BR)
  Receive Date: 20130625
  Receipt Date: 20130828
  Transmission Date: 20140515
  Serious: Yes (Other)
  Sender: FDA-Public Use
  Company Number: PHHY2013BR064678

PATIENT
  Sex: Male
  Weight: 101 kg

DRUGS (6)
  1. APRESOLIN [Suspect]
     Indication: HYPERTENSION
     Dosage: 2 DF, (50 MG) A DAY
     Route: 048
     Dates: end: 201303
  2. DIOVAN [Suspect]
     Indication: HYPERTENSION
     Dosage: 1 DF, (320 MG) A DAY
     Route: 048
  3. ATENSINA [Suspect]
     Indication: HYPERTENSION
     Dosage: 2 DF, (100 MG) A DAY
     Route: 048
  4. ATENSINA [Suspect]
     Dosage: 4 DF, (100 MG) A DAY
  5. GLIFAGE [Concomitant]
     Indication: INSULIN RESISTANCE
     Dosage: 4 DF, (500 MG) A DAY
     Route: 048
  6. ALLOPURINOL [Concomitant]
     Indication: HYPERTENSION
     Dosage: 1 DF (100MG), UNK
     Route: 048

REACTIONS (3)
  - Hypertension [Not Recovered/Not Resolved]
  - Dry mouth [Not Recovered/Not Resolved]
  - Somnolence [Not Recovered/Not Resolved]
